FAERS Safety Report 5969430-0 (Version None)
Quarter: 2008Q4

REPORT INFORMATION
  Report Type: 
  Country: None (occurrence: None)
  Receive Date: 20081126
  Receipt Date: 20080902
  Transmission Date: 20090506
  Serious: No
  Sender: FDA-Public Use
  Company Number: US-ABBOTT-08P-163-0473778-00

PATIENT
  Sex: Male
  Weight: 75.364 kg

DRUGS (10)
  1. SIMCOR [Suspect]
     Indication: BLOOD CHOLESTEROL INCREASED
  2. ALLOPURINOL [Concomitant]
     Indication: GOUT
  3. CARVEDILOL [Concomitant]
     Indication: CARDIAC DISORDER
  4. CARVEDILOL [Concomitant]
     Indication: HYPERTENSION
  5. OMEPRAZOLE [Concomitant]
     Indication: DYSPEPSIA
  6. FUROSEMIDE [Concomitant]
     Indication: FLUID RETENTION
  7. TAMSULOSINE [Concomitant]
     Indication: PROSTATOMEGALY
  8. RISEDRONATE SODIUM [Concomitant]
     Indication: OSTEOPOROSIS
  9. FINISTERIDE [Concomitant]
     Indication: PROSTATOMEGALY
  10. FISH OIL [Concomitant]
     Indication: BLOOD CHOLESTEROL INCREASED

REACTIONS (1)
  - FLUSHING [None]
